FAERS Safety Report 5956724-8 (Version None)
Quarter: 2008Q4

REPORT INFORMATION
  Report Type: 
  Country: None (occurrence: None)
  Receive Date: 20081118
  Receipt Date: 20081110
  Transmission Date: 20090506
  Serious: Yes (Hospitalization)
  Sender: FDA-Public Use
  Company Number: US-ABBOTT-08P-163-0486810-00

PATIENT
  Sex: Female
  Weight: 75.364 kg

DRUGS (10)
  1. HUMIRA [Suspect]
     Indication: PSORIASIS
     Route: 058
     Dates: start: 20050101, end: 20081001
  2. HUMIRA [Suspect]
     Indication: RHEUMATOID ARTHRITIS
  3. HUMIRA [Suspect]
     Indication: PSORIASIS
     Route: 058
     Dates: start: 20081001
  4. HUMIRA [Suspect]
     Indication: RHEUMATOID ARTHRITIS
  5. METHOTREXATE [Suspect]
     Indication: RHEUMATOID ARTHRITIS
  6. SIMVASTATIN [Concomitant]
     Indication: BLOOD CHOLESTEROL
     Route: 048
  7. ACETYLSALICYLIC ACID SRT [Concomitant]
     Indication: DRUG USE FOR UNKNOWN INDICATION
     Route: 048
  8. VITAMINS [Concomitant]
     Indication: DRUG USE FOR UNKNOWN INDICATION
     Route: 048
  9. CYANOCOBALAMIN-TANNIN COMPLEX [Concomitant]
     Indication: DRUG USE FOR UNKNOWN INDICATION
  10. FISH OIL [Concomitant]
     Indication: BLOOD CHOLESTEROL
     Route: 048

REACTIONS (3)
  - HEPATIC ENZYME INCREASED [None]
  - PSORIASIS [None]
  - TRANSIENT ISCHAEMIC ATTACK [None]
